FAERS Safety Report 6340852-1 (Version None)
Quarter: 2009Q3

REPORT INFORMATION
  Report Type: 
  Country: None (occurrence: None)
  Receive Date: 20090904
  Receipt Date: 20090904
  Transmission Date: 20100115
  Serious: Yes (Other)
  Sender: FDA-Public Use
  Company Number: US-PFIZER INC-2009243878

PATIENT
  Sex: Female
  Weight: 89.8 kg

DRUGS (2)
  1. VERAPAMIL HCL [Suspect]
     Indication: VENTRICULAR EXTRASYSTOLES
     Dosage: FREQUENCY: 1X/DAY, EVERY DAY;
  2. METOPROLOL [Concomitant]
     Dosage: UNK

REACTIONS (4)
  - BURNING SENSATION [None]
  - CARDIAC OPERATION [None]
  - HIP ARTHROPLASTY [None]
  - WEIGHT DECREASED [None]
